FAERS Safety Report 4326427-4 (Version None)
Quarter: 2004Q1

REPORT INFORMATION
  Report Type: 
  Country: None (occurrence: None)
  Receive Date: 20040329
  Receipt Date: 20040329
  Transmission Date: 20041129
  Serious: Yes (Hospitalization)
  Sender: FDA-Public Use
  Company Number: None

PATIENT
  Sex: Female
  Weight: 113.3993 kg

DRUGS (2)
  1. ZOLOFT [Suspect]
     Indication: ANXIETY
     Dates: start: 19950101, end: 20040314
  2. ZOLOFT [Suspect]
     Indication: STRESS SYMPTOMS
     Dates: start: 19950101, end: 20040314

REACTIONS (5)
  - DRUG WITHDRAWAL SYNDROME [None]
  - FEELING ABNORMAL [None]
  - HEART RATE INCREASED [None]
  - INFLUENZA [None]
  - PALPITATIONS [None]
